FAERS Safety Report 17475358 (Version 1)
Quarter: 2020Q1

REPORT INFORMATION
  Report Type: Report from Study
  Country: GB (occurrence: GB)
  Receive Date: 20200228
  Receipt Date: 20200228
  Transmission Date: 20200409
  Serious: Yes (Other)
  Sender: FDA-Public Use
  Company Number: GB-JNJFOC-20190826016

PATIENT
  Sex: Male

DRUGS (14)
  1. MIRABEGRON [Concomitant]
     Active Substance: MIRABEGRON
  2. COLESEVELAM [Concomitant]
     Active Substance: COLESEVELAM
  3. SODIUM BICARBONATE. [Concomitant]
     Active Substance: SODIUM BICARBONATE
  4. AMLODIPINE [Concomitant]
     Active Substance: AMLODIPINE BESYLATE
  5. ORAMORPH [Concomitant]
     Active Substance: MORPHINE SULFATE
  6. STELARA [Suspect]
     Active Substance: USTEKINUMAB
     Indication: CROHN^S DISEASE
     Route: 058
     Dates: start: 20180523
  7. RANITIDINE. [Concomitant]
     Active Substance: RANITIDINE
  8. MATRIFEN [Concomitant]
     Active Substance: FENTANYL
  9. FOLIC ACID. [Concomitant]
     Active Substance: FOLIC ACID
  10. BUSCOPAN [Concomitant]
     Active Substance: BUTYLSCOPOLAMINE BROMIDE
  11. VITAMIN B12 [Concomitant]
     Active Substance: CYANOCOBALAMIN
  12. PARACETAMOL [Concomitant]
     Active Substance: ACETAMINOPHEN
  13. ALFACALCIDOL [Concomitant]
     Active Substance: ALFACALCIDOL
  14. INSULIN [Concomitant]
     Active Substance: INSULIN NOS

REACTIONS (4)
  - Device related infection [Unknown]
  - Abscess [Unknown]
  - Crohn^s disease [Unknown]
  - Weight decreased [Unknown]
